FAERS Safety Report 20430064 (Version 1)
Quarter: 2022Q1

REPORT INFORMATION
  Report Type: Spontaneous
  Country: DE (occurrence: DE)
  Receive Date: 20220204
  Receipt Date: 20220204
  Transmission Date: 20220424
  Serious: Yes (Hospitalization, Other)
  Sender: FDA-Public Use
  Company Number: None

PATIENT
  Age: 35 Year
  Sex: Female

DRUGS (4)
  1. ORGALUTRAN [Suspect]
     Active Substance: GANIRELIX ACETATE
     Indication: Assisted reproductive technology
     Dosage: 0.25 MILLIGRAM, QD
     Dates: start: 20211113, end: 20211118
  2. CHORIOGONADOTROPIN ALFA [Suspect]
     Active Substance: CHORIOGONADOTROPIN ALFA
     Indication: Assisted reproductive technology
     Dosage: 250 MICROGRAM, QD
     Dates: start: 20211118, end: 20211118
  3. FOLLITROPIN\LUTROPIN ALFA [Suspect]
     Active Substance: FOLLITROPIN\LUTROPIN ALFA
     Indication: Assisted reproductive technology
     Dosage: 200 INTERNATIONAL UNIT, QD
     Dates: start: 20211107, end: 20211117
  4. NOVALGIN (METAMIZOLE SODIUM) [Concomitant]
     Active Substance: METAMIZOLE SODIUM
     Dosage: 20 GTT DROPS, QD
     Dates: start: 20211120, end: 20211120

REACTIONS (2)
  - Ovarian hyperstimulation syndrome [Recovered/Resolved]
  - Intra-abdominal haemorrhage [Recovered/Resolved]

NARRATIVE: CASE EVENT DATE: 20211120
